FAERS Safety Report 12485179 (Version 2)
Quarter: 2016Q3

REPORT INFORMATION
  Report Type: Spontaneous
  Country: US (occurrence: US)
  Receive Date: 20160621
  Receipt Date: 20160706
  Transmission Date: 20161109
  Serious: Yes (Other)
  Sender: FDA-Public Use
  Company Number: US-LPDUSPRD-20160506

PATIENT
  Age: 55 Year
  Sex: Female
  Weight: 85.6 kg

DRUGS (12)
  1. ALBUTEROL INHALER [Concomitant]
     Active Substance: ALBUTEROL
     Dosage: 2 PUFFS Q 4H PRN
     Route: 055
  2. DILATIZEM [Concomitant]
     Dosage: 60 MG BID
     Route: 065
  3. LANSOPRAZOLE. [Concomitant]
     Active Substance: LANSOPRAZOLE
     Dosage: 60 MG BID
     Route: 065
  4. CHOLECALCIFEROL [Concomitant]
     Active Substance: CHOLECALCIFEROL
     Dosage: 5000 IU DAILY
     Route: 065
  5. POLYETHYLENE GLYCOL [Concomitant]
     Active Substance: POLYETHYLENE GLYCOLS
     Dosage: 17 G DAILY
     Route: 065
  6. ROPINIROLE. [Concomitant]
     Active Substance: ROPINIROLE
     Dosage: 0.25MG NIGHTLY
     Route: 065
  7. CYCLOBENZAPRINE [Concomitant]
     Active Substance: CYCLOBENZAPRINE
     Dosage: 5 MG TID PRN
     Route: 065
  8. VITAMIN B12 [Concomitant]
     Active Substance: CYANOCOBALAMIN
     Dosage: 5000 MCG DAILY
     Route: 065
  9. INJECTAFER [Suspect]
     Active Substance: FERRIC CARBOXYMALTOSE
     Dosage: 750 MG WEEKLY X2
     Route: 040
     Dates: start: 20160328, end: 20160404
  10. MELOXICAM. [Concomitant]
     Active Substance: MELOXICAM
     Dosage: 15 MG DAILY PRN
     Route: 065
  11. LEVOTHYROXINE. [Concomitant]
     Active Substance: LEVOTHYROXINE
     Dosage: 75 MG DAILY
     Route: 065
  12. DULOXETINE. [Concomitant]
     Active Substance: DULOXETINE
     Dosage: 60 MG BID
     Route: 065

REACTIONS (1)
  - Blood phosphorus decreased [Unknown]

NARRATIVE: CASE EVENT DATE: 20160404
